FAERS Safety Report 5086214-9 (Version None)
Quarter: 2006Q3

REPORT INFORMATION
  Report Type: 
  Country: None (occurrence: None)
  Receive Date: 20060818
  Receipt Date: 20060809
  Transmission Date: 20061208
  Serious: Yes (Death, Other)
  Sender: FDA-Public Use
  Company Number: 2006US001740

PATIENT
  Age: 64 Year
  Sex: Male

DRUGS (5)
  1. AMBISOME [Suspect]
     Indication: FUNGAL INFECTION
     Dosage: SEE IMAGE
     Route: 041
     Dates: start: 20060701, end: 20060701
  2. AMBISOME [Suspect]
     Indication: FUNGAL INFECTION
     Dosage: SEE IMAGE
     Route: 041
     Dates: start: 20060706, end: 20060707
  3. AMBISOME [Suspect]
     Indication: FUNGAL INFECTION
     Dosage: SEE IMAGE
     Route: 041
     Dates: start: 20060707, end: 20060710
  4. FUNGUARD (MICAFUNGIN SODIUM) [Concomitant]
  5. MEROPEN [Concomitant]

REACTIONS (9)
  - ATRIAL FIBRILLATION [None]
  - BLOOD PRESSURE INCREASED [None]
  - CARDIAC ARREST [None]
  - CHILLS [None]
  - FLUSHING [None]
  - HYPOTHERMIA [None]
  - TREMOR [None]
  - VENTRICULAR FIBRILLATION [None]
  - VENTRICULAR TACHYCARDIA [None]
